FAERS Safety Report 7296810-6 (Version None)
Quarter: 2011Q1

REPORT INFORMATION
  Report Type: 
  Country: None (occurrence: None)
  Receive Date: 20110216
  Receipt Date: 20110210
  Transmission Date: 20110831
  Serious: Yes (Hospitalization)
  Sender: FDA-Public Use
  Company Number: ES-MERCK-1101ESP00022

PATIENT
  Age: 76 Year
  Sex: Male

DRUGS (7)
  1. SINEMET CR [Suspect]
     Route: 065
     Dates: start: 20100401
  2. SINEMET CR [Suspect]
     Indication: PARKINSON'S DISEASE
     Route: 065
     Dates: start: 20080101, end: 20100401
  3. LEVETIRACETAM [Concomitant]
     Indication: EPILEPSY
     Route: 065
     Dates: start: 20080101
  4. DILTIAZEM HYDROCHLORIDE [Concomitant]
     Indication: HYPERTENSION
     Route: 065
  5. ROTIGOTINE [Concomitant]
     Indication: PARKINSON'S DISEASE
     Route: 065
     Dates: start: 20080101
  6. CLOPIDOGREL BISULFATE [Concomitant]
     Indication: CEREBROVASCULAR ACCIDENT
     Route: 065
     Dates: start: 20080101
  7. SINEMET [Concomitant]
     Indication: PARKINSON'S DISEASE
     Route: 065
     Dates: start: 20080101

REACTIONS (3)
  - MASTICATION DISORDER [None]
  - HYPOAESTHESIA FACIAL [None]
  - SPEECH DISORDER [None]
